FAERS Safety Report 25440477 (Version 1)
Quarter: 2025Q2

REPORT INFORMATION
  Report Type: Spontaneous
  Country: US (occurrence: None)
  Receive Date: 20250616
  Receipt Date: 20250616
  Transmission Date: 20250717
  Serious: Yes (Hospitalization)
  Sender: FDA-CTU
  Company Number: None

PATIENT
  Age: 23 Year
  Sex: Female
  Weight: 53.1 kg

DRUGS (6)
  1. SERTRALINE [Suspect]
     Active Substance: SERTRALINE HYDROCHLORIDE
     Indication: Anxiety
     Dosage: OTHER QUANTITY : 1 TABLET(S);?FREQUENCY : AT BEDTIME;?
     Route: 048
     Dates: start: 20240617, end: 20240617
  2. LINZESS [Concomitant]
     Active Substance: LINACLOTIDE
  3. FAMOTIDINE [Concomitant]
     Active Substance: FAMOTIDINE
  4. ESOMEPRAZOLE [Concomitant]
     Active Substance: ESOMEPRAZOLE
  5. ONDANSETRON [Concomitant]
     Active Substance: ONDANSETRON
  6. MELATONIN [Concomitant]
     Active Substance: MELATONIN

REACTIONS (13)
  - Fatigue [None]
  - Flat affect [None]
  - Drug ineffective [None]
  - Adverse drug reaction [None]
  - Brain fog [None]
  - Anhedonia [None]
  - Amnesia [None]
  - Depersonalisation/derealisation disorder [None]
  - Derealisation [None]
  - Depression [None]
  - Muscle twitching [None]
  - Loss of libido [None]
  - Disturbance in sexual arousal [None]

NARRATIVE: CASE EVENT DATE: 20240617
